FAERS Safety Report 4275451-9 (Version None)
Quarter: 2004Q1

REPORT INFORMATION
  Report Type: 
  Country: None (occurrence: None)
  Receive Date: 20040116
  Receipt Date: 20040108
  Transmission Date: 20041129
  Serious: Yes (Other)
  Sender: FDA-Public Use
  Company Number: 2004001594

PATIENT
  Sex: Male

DRUGS (1)
  1. DIFLUCAN [Suspect]
     Indication: COCCIDIOIDOMYCOSIS

REACTIONS (6)
  - BENIGN PROSTATIC HYPERPLASIA [None]
  - BLADDER DISORDER [None]
  - BLOOD CREATININE INCREASED [None]
  - BLOOD UREA INCREASED [None]
  - INFLAMMATION [None]
  - URINARY RETENTION [None]
